FAERS Safety Report 6348794-2 (Version None)
Quarter: 2009Q3

REPORT INFORMATION
  Report Type: 
  Country: None (occurrence: None)
  Receive Date: 20090911
  Receipt Date: 20090908
  Transmission Date: 20100115
  Serious: Yes (Hospitalization)
  Sender: FDA-Public Use
  Company Number: AU-BRISTOL-MYERS SQUIBB COMPANY-14769624

PATIENT
  Age: 47 Year
  Sex: Male

DRUGS (3)
  1. ETOPOSIDE [Suspect]
     Indication: ACUTE LYMPHOCYTIC LEUKAEMIA
     Dosage: OVER 30 MINUTES, DAILY ON DAYS 1-7.
     Route: 042
  2. CYTARABINE [Suspect]
     Indication: ACUTE LYMPHOCYTIC LEUKAEMIA
     Dosage: INFUSION OVER 3 HOURS, TWICE DAILY ON DAYS 1, 3, 5, AND 7.  REDUCED TO 100 MG/M2 DAILY ON DAYS 1-5
     Route: 042
  3. IDARUBICIN HCL [Suspect]
     Indication: ACUTE MYELOID LEUKAEMIA
     Dosage: ON DAYS 1-3 TWO WEEKS LATER, 12 MG/M2 WAS ADMINISTERED ON DAY 1 AND 2
     Route: 040

REACTIONS (4)
  - BLOOD BILIRUBIN INCREASED [None]
  - FEBRILE NEUTROPENIA [None]
  - HYPOTENSION [None]
  - RESPIRATORY DISORDER [None]
